FAERS Safety Report 16048313 (Version 2)
Quarter: 2019Q1

REPORT INFORMATION
  Report Type: Report from Study
  Country: CA (occurrence: CA)
  Receive Date: 20190307
  Receipt Date: 20190321
  Transmission Date: 20190418
  Serious: Yes (Hospitalization)
  Sender: FDA-Public Use
  Company Number: US-AMGEN-CANCT2019031592

PATIENT
  Age: 39 Year
  Sex: Female

DRUGS (1)
  1. AIMOVIG [Suspect]
     Active Substance: ERENUMAB-AOOE
     Indication: MIGRAINE
     Dosage: 70 MG, UNK
     Route: 065
     Dates: start: 20190205, end: 20190311

REACTIONS (6)
  - Abdominal pain [Unknown]
  - Drug hypersensitivity [Unknown]
  - Rash macular [Unknown]
  - Chest pain [Recovering/Resolving]
  - Constipation [Unknown]
  - Injection site pain [Unknown]

NARRATIVE: CASE EVENT DATE: 201902
